FAERS Safety Report 7691175-X (Version None)
Quarter: 2011Q3

REPORT INFORMATION
  Report Type: 
  Country: None (occurrence: None)
  Receive Date: 20110818
  Receipt Date: 20110809
  Transmission Date: 20111222
  Serious: Yes (Other)
  Sender: FDA-Public Use
  Company Number: BR-BAYER-2011-071021

PATIENT
  Age: 29 Year
  Sex: Female
  Weight: 56 kg

DRUGS (6)
  1. ESTRADIOL VALERATE/DIENOGEST [Suspect]
     Indication: CONTRACEPTION
     Dosage: 1 DF, QD
     Route: 048
     Dates: start: 20110708
  2. DEXAMETHASONE [Concomitant]
     Indication: WISDOM TEETH REMOVAL
     Dosage: 1 DF, BID
     Route: 048
     Dates: start: 20110729, end: 20110729
  3. CEPHALEXIN [Concomitant]
     Indication: WISDOM TEETH REMOVAL
     Dosage: 2 DF, QID
     Route: 048
     Dates: start: 20110729
  4. TORAGESIC [Concomitant]
     Indication: PAIN
     Dosage: 1 DF, PRN
     Route: 048
  5. ALESTRA 20 [Concomitant]
     Indication: CONTRACEPTION
     Dosage: UNK
     Dates: end: 20110707
  6. UNKNOWN DRUG [Concomitant]
     Indication: CANDIDIASIS
     Dosage: 1 DF, OW
     Route: 048
     Dates: start: 20110701

REACTIONS (2)
  - CERVIX DISORDER [None]
  - AMENORRHOEA [None]
